FAERS Safety Report 6637907-0 (Version None)
Quarter: 2010Q1

REPORT INFORMATION
  Report Type: 
  Country: None (occurrence: None)
  Receive Date: 20100317
  Receipt Date: 20100305
  Transmission Date: 20100710
  Serious: Yes (Hospitalization, Other)
  Sender: FDA-Public Use
  Company Number: PHEH2009US09431

PATIENT
  Sex: Male
  Weight: 106 kg

DRUGS (13)
  1. EXJADE [Suspect]
     Indication: IRON OVERLOAD
     Dosage: 2000 MG DAILY
     Route: 048
     Dates: start: 20060627
  2. EXJADE [Suspect]
     Dosage: 1500 MG DAILY
     Route: 048
     Dates: end: 20070903
  3. DESFERAL [Suspect]
     Indication: IRON OVERLOAD
     Dosage: 2G/DAY
     Route: 058
     Dates: start: 20070901
  4. DESFERAL [Suspect]
     Dosage: 1G/QOD
     Route: 058
     Dates: start: 20070917, end: 20090605
  5. DESFERAL [Suspect]
     Dosage: 1G QD
     Route: 058
  6. DESFERAL [Suspect]
     Dosage: 2G QOD
     Route: 058
  7. DESFERAL [Suspect]
     Dosage: 1 G, QOD
  8. ASPIRIN [Concomitant]
     Dosage: 81 MG DAILY
     Route: 048
  9. ATENOLOL [Concomitant]
     Dosage: 25 MG DAILY
     Route: 048
  10. ALLOPURINOL [Concomitant]
     Dosage: 200 MG DAILY
  11. VITAMIN B6 [Concomitant]
     Dosage: 100 MG DAILY
     Route: 048
  12. FOLIC ACID [Concomitant]
  13. PROCRIT                            /00909301/ [Concomitant]
     Dosage: 60000 IU, UNK
     Route: 058

REACTIONS (10)
  - ABDOMINAL DISCOMFORT [None]
  - CARDIAC FAILURE CONGESTIVE [None]
  - DEHYDRATION [None]
  - DIARRHOEA [None]
  - LIVER DISORDER [None]
  - MALAISE [None]
  - NAUSEA [None]
  - RENAL FAILURE [None]
  - SERUM FERRITIN INCREASED [None]
  - VISION BLURRED [None]
